FAERS Safety Report 4508274-3 (Version None)
Quarter: 2004Q4

REPORT INFORMATION
  Report Type: 
  Country: None (occurrence: None)
  Receive Date: 20041123
  Receipt Date: 20031211
  Transmission Date: 20050328
  Serious: No
  Sender: FDA-Public Use
  Company Number: US-GLAXOSMITHKLINE-A0442810A

PATIENT
  Age: 40 Year
  Sex: Female

DRUGS (16)
  1. WELLBUTRIN [Suspect]
     Dosage: 150MG TWICE PER DAY
     Route: 048
  2. PATANOL [Concomitant]
  3. FLONASE [Concomitant]
  4. NASALCROM [Concomitant]
  5. BENADRYL [Concomitant]
  6. ALLEGRA [Concomitant]
  7. DOCUSATE [Concomitant]
  8. ZELNORM [Concomitant]
  9. PROTONIX [Concomitant]
  10. PREDNISONE [Concomitant]
  11. CREON [Concomitant]
  12. PENTASA [Concomitant]
  13. AMBIEN [Concomitant]
  14. CYTOTEC [Concomitant]
  15. MIACALCIN [Concomitant]
  16. UNSPECIFIED MEDICATION [Concomitant]

REACTIONS (3)
  - ABDOMINAL DISTENSION [None]
  - DRUG INEFFECTIVE [None]
  - PERIORBITAL OEDEMA [None]
